FAERS Safety Report 11266175 (Version 3)
Quarter: 2020Q3

REPORT INFORMATION
  Report Type: Spontaneous
  Country: US (occurrence: US)
  Receive Date: 20150713
  Receipt Date: 20200924
  Transmission Date: 20201102
  Serious: Yes (Hospitalization, Other)
  Sender: FDA-Public Use
  Company Number: US-BAYER-2015-000657

PATIENT
  Age: 62 Year
  Sex: Female

DRUGS (21)
  1. ATENOLOL. [Concomitant]
     Active Substance: ATENOLOL
     Route: 065
  2. DILTIAZEM. [Concomitant]
     Active Substance: DILTIAZEM
     Dosage: UNK
     Route: 065
  3. FLUOXETINE [Concomitant]
     Active Substance: FLUOXETINE HYDROCHLORIDE
     Dosage: UNK
     Route: 065
  4. GLIPIZIDE. [Concomitant]
     Active Substance: GLIPIZIDE
     Dosage: UNK
     Route: 065
  5. GLIPIZIDE. [Concomitant]
     Active Substance: GLIPIZIDE
     Route: 065
  6. DILTIAZEM. [Concomitant]
     Active Substance: DILTIAZEM
     Route: 065
  7. ASPIRIN (CARDIO) [Suspect]
     Active Substance: ASPIRIN
     Dosage: 81 MG, QD
     Route: 048
     Dates: start: 20131224
  8. HUMULIN 70/30 [Concomitant]
     Active Substance: INSULIN HUMAN
     Dosage: UNK
     Route: 065
  9. LOVASTATIN. [Concomitant]
     Active Substance: LOVASTATIN
     Dosage: UNK
     Route: 065
  10. LASIX [Concomitant]
     Active Substance: FUROSEMIDE
     Dosage: UNK
     Route: 065
  11. XARELTO [Suspect]
     Active Substance: RIVAROXABAN
     Indication: CEREBROVASCULAR ACCIDENT PROPHYLAXIS
  12. XARELTO [Suspect]
     Active Substance: RIVAROXABAN
     Indication: ATRIAL FIBRILLATION
  13. FLUOXETINE [Concomitant]
     Active Substance: FLUOXETINE HYDROCHLORIDE
     Route: 065
  14. METFORMIN [Concomitant]
     Active Substance: METFORMIN HYDROCHLORIDE
     Dosage: UNK
     Route: 065
  15. METFORMIN [Concomitant]
     Active Substance: METFORMIN HYDROCHLORIDE
     Route: 065
  16. XARELTO [Suspect]
     Active Substance: RIVAROXABAN
     Indication: ATRIAL FIBRILLATION
     Dosage: 20 MG, QD
     Route: 048
     Dates: start: 20131125, end: 20140422
  17. XARELTO [Suspect]
     Active Substance: RIVAROXABAN
     Indication: THROMBOSIS PROPHYLAXIS
  18. XARELTO [Suspect]
     Active Substance: RIVAROXABAN
     Indication: THROMBOSIS PROPHYLAXIS
  19. LOVASTATIN. [Concomitant]
     Active Substance: LOVASTATIN
     Route: 065
  20. XARELTO [Suspect]
     Active Substance: RIVAROXABAN
     Indication: CEREBROVASCULAR ACCIDENT PROPHYLAXIS
  21. ATENOLOL. [Concomitant]
     Active Substance: ATENOLOL
     Dosage: UNK
     Route: 065

REACTIONS (5)
  - Gastrooesophageal reflux disease [Unknown]
  - Lower gastrointestinal haemorrhage [Recovering/Resolving]
  - Asthenia [Recovering/Resolving]
  - Anaemia [Recovering/Resolving]
  - Gait inability [Recovering/Resolving]

NARRATIVE: CASE EVENT DATE: 20140101
